FAERS Safety Report 20194972 (Version 1)
Quarter: 2021Q4

REPORT INFORMATION
  Report Type: Spontaneous
  Country: US (occurrence: None)
  Receive Date: 20211216
  Receipt Date: 20211216
  Transmission Date: 20220303
  Serious: Yes (Hospitalization)
  Sender: FDA-Public Use
  Company Number: None

PATIENT
  Age: 63 Year
  Sex: Female
  Weight: 99.45 kg

DRUGS (1)
  1. REMICADE [Suspect]
     Active Substance: INFLIXIMAB
     Indication: Ankylosing spondylitis
     Dosage: OTHER FREQUENCY : EVERY 8 WEEKS;?
     Route: 041

REACTIONS (9)
  - Urticaria [None]
  - Palmar-plantar erythrodysaesthesia syndrome [None]
  - Peripheral swelling [None]
  - Skin tightness [None]
  - Blood glucose increased [None]
  - Intentional dose omission [None]
  - Therapy non-responder [None]
  - Pruritus [None]
  - Therapy interrupted [None]

NARRATIVE: CASE EVENT DATE: 20211215
